FAERS Safety Report 18610555 (Version 1)
Quarter: 2020Q4

REPORT INFORMATION
  Report Type: Spontaneous
  Country: US (occurrence: US)
  Receive Date: 20201211
  Receipt Date: 20201211
  Transmission Date: 20210114
  Serious: No
  Sender: FDA-Public Use
  Company Number: None

PATIENT
  Age: 79 Year
  Sex: Male
  Weight: 84.3 kg

DRUGS (1)
  1. IRINOTECAN [Suspect]
     Active Substance: IRINOTECAN
     Indication: ADENOCARCINOMA PANCREAS
     Dosage: ?          OTHER FREQUENCY:EVERY 14 DAYS;?
     Route: 041
     Dates: start: 20200826

REACTIONS (5)
  - Infusion related reaction [None]
  - Muscle spasms [None]
  - Anxiety [None]
  - Paraesthesia [None]
  - Dysarthria [None]

NARRATIVE: CASE EVENT DATE: 20201104
